APPROVED DRUG PRODUCT: CALCITRIOL
Active Ingredient: CALCITRIOL
Strength: 1MCG/ML
Dosage Form/Route: SOLUTION;ORAL
Application: A076242 | Product #001 | TE Code: AA
Applicant: HIKMA PHARMACEUTICALS USA INC
Approved: Jul 18, 2003 | RLD: No | RS: No | Type: RX